FAERS Safety Report 20169007 (Version 1)
Quarter: 2021Q4

REPORT INFORMATION
  Report Type: Spontaneous
  Country: AT (occurrence: AT)
  Receive Date: 20211210
  Receipt Date: 20211210
  Transmission Date: 20220303
  Serious: Yes (Death, Hospitalization, Other)
  Sender: FDA-Public Use
  Company Number: AT-SUN PHARMACEUTICAL INDUSTRIES LTD-2021R1-320244

PATIENT
  Sex: Male
  Weight: .8 kg

DRUGS (8)
  1. TACROLIMUS [Suspect]
     Active Substance: TACROLIMUS
     Indication: Immunosuppression
     Dosage: UNK
     Route: 064
  2. GABAPENTIN [Suspect]
     Active Substance: GABAPENTIN
     Indication: Sedative therapy
     Dosage: UNK
     Route: 064
  3. GABAPENTIN [Suspect]
     Active Substance: GABAPENTIN
     Indication: Analgesic therapy
  4. LORAZEPAM [Suspect]
     Active Substance: LORAZEPAM
     Indication: Sedative therapy
     Dosage: UNK
     Route: 064
  5. LORAZEPAM [Suspect]
     Active Substance: LORAZEPAM
     Indication: Analgesic therapy
  6. QUETIAPINE [Suspect]
     Active Substance: QUETIAPINE
     Indication: Sedative therapy
     Dosage: UNK
     Route: 064
  7. QUETIAPINE [Suspect]
     Active Substance: QUETIAPINE
     Indication: Analgesic therapy
  8. ALEMTUZUMAB [Suspect]
     Active Substance: ALEMTUZUMAB
     Indication: Immunosuppression
     Dosage: UNK
     Route: 064

REACTIONS (7)
  - Pulmonary hypertension [Fatal]
  - Respiratory failure [Fatal]
  - Withdrawal syndrome [Unknown]
  - Low birth weight baby [Unknown]
  - Thrombocytopenia neonatal [Unknown]
  - Foetal exposure during pregnancy [Unknown]
  - Premature baby [Unknown]
